FAERS Safety Report 8086990-7 (Version None)
Quarter: 2012Q1

REPORT INFORMATION
  Report Type: 
  Country: None (occurrence: None)
  Receive Date: 20120128
  Receipt Date: 20110517
  Transmission Date: 20120608
  Serious: No
  Sender: FDA-Public Use
  Company Number: US-ABBOTT-11P-163-0726217-00

PATIENT
  Sex: Female
  Weight: 70.37 kg

DRUGS (6)
  1. HUMIRA [Suspect]
     Indication: PSORIASIS
     Dates: start: 20110301, end: 20110401
  2. SPIRONOLACTONE [Concomitant]
     Indication: ACNE
  3. KARIVA [Concomitant]
     Indication: CONTRACEPTION
  4. PROBIO [Concomitant]
     Indication: IMMUNE SYSTEM DISORDER
  5. ZOLOFT [Concomitant]
     Indication: ANXIETY
  6. MULTI-VITAMINS [Concomitant]
     Indication: VITAMIN SUPPLEMENTATION

REACTIONS (7)
  - SKIN HAEMORRHAGE [None]
  - DIARRHOEA [None]
  - PSORIASIS [None]
  - FOOD POISONING [None]
  - VOMITING [None]
  - SKIN EXFOLIATION [None]
  - NAUSEA [None]
